FAERS Safety Report 6028103-9 (Version None)
Quarter: 2008Q4

REPORT INFORMATION
  Report Type: 
  Country: None (occurrence: None)
  Receive Date: 20081231
  Receipt Date: 20081231
  Transmission Date: 20090506
  Serious: Yes (Death, Hospitalization)
  Sender: FDA-Public Use
  Company Number: None

PATIENT
  Age: 80 Year
  Sex: Male
  Weight: 75 kg

DRUGS (2)
  1. BICALUTAMIDE [Suspect]
     Indication: PROPHYLAXIS
     Dosage: 100 MG 50 MG EVERY 12 HRS BUCCAL
     Route: 002
     Dates: start: 20081003, end: 20081025
  2. BICALUTAMIDE [Suspect]
     Indication: PROSTATE CANCER
     Dosage: 100 MG 50 MG EVERY 12 HRS BUCCAL
     Route: 002
     Dates: start: 20081003, end: 20081025

REACTIONS (8)
  - DRUG INTERACTION [None]
  - GASTRIC DISORDER [None]
  - HEPATITIS TOXIC [None]
  - ILEUS PARALYTIC [None]
  - INTERNATIONAL NORMALISED RATIO INCREASED [None]
  - LIVER DISORDER [None]
  - MEDICATION ERROR [None]
  - VOMITING [None]
